FAERS Safety Report 9200023 (Version 1)
Quarter: 2013Q1

REPORT INFORMATION
  Report Type: Spontaneous
  Country: FR (occurrence: FR)
  Receive Date: 20130329
  Receipt Date: 20130329
  Transmission Date: 20140127
  Serious: Yes (Congenital Anomaly)
  Sender: FDA-Public Use
  Company Number: FR-GLAXOSMITHKLINE-B0877728A

PATIENT
  Sex: Male

DRUGS (1)
  1. LAMICTAL [Suspect]
     Indication: EPILEPSY
     Dosage: 150MG PER DAY
     Route: 064

REACTIONS (4)
  - Congenital vesicoureteric reflux [Not Recovered/Not Resolved]
  - Congenital pyelocaliectasis [Not Recovered/Not Resolved]
  - Congenital ureteric anomaly [Not Recovered/Not Resolved]
  - Foetal exposure during pregnancy [Unknown]
